FAERS Safety Report 12116060 (Version 1)
Quarter: 2016Q1

REPORT INFORMATION
  Report Type: Spontaneous
  Country: US (occurrence: US)
  Receive Date: 20160225
  Receipt Date: 20160225
  Transmission Date: 20160526
  Serious: No
  Sender: FDA-Public Use
  Company Number: US-LANTHEUS-LMI-2015-00373

PATIENT
  Age: 59 Year
  Sex: Female
  Weight: 102 kg

DRUGS (4)
  1. DEFINITY [Suspect]
     Active Substance: PERFLUTREN
     Indication: STRESS ECHOCARDIOGRAM
     Dosage: TOTAL DOSE OF 1.2 ML UNDILUTED DEFINITY
     Route: 040
     Dates: start: 20150709, end: 20150709
  2. DEFINITY [Suspect]
     Active Substance: PERFLUTREN
     Dosage: TOTAL DOSE OF 1.2 ML UNDILUTED DEFINITY
     Route: 040
     Dates: start: 20150709, end: 20150709
  3. RESTORIL [Concomitant]
     Active Substance: TEMAZEPAM
     Indication: PRODUCT USED FOR UNKNOWN INDICATION
  4. PRILOSEC [Concomitant]
     Active Substance: OMEPRAZOLE MAGNESIUM
     Indication: PRODUCT USED FOR UNKNOWN INDICATION

REACTIONS (6)
  - Dysphagia [Recovered/Resolved]
  - Cough [Recovered/Resolved]
  - Ocular hyperaemia [Recovered/Resolved]
  - Hypersensitivity [Recovered/Resolved]
  - Dysphonia [Recovered/Resolved]
  - Urticaria [Recovered/Resolved]

NARRATIVE: CASE EVENT DATE: 20150709
